FAERS Safety Report 6462551-8 (Version None)
Quarter: 2009Q4

REPORT INFORMATION
  Report Type: 
  Country: None (occurrence: None)
  Receive Date: 20091130
  Receipt Date: 20091118
  Transmission Date: 20100525
  Serious: Yes (Hospitalization)
  Sender: FDA-Public Use
  Company Number: FR-ASTRAZENECA-2009SE27216

PATIENT
  Age: 66 Year
  Sex: Female

DRUGS (4)
  1. SYMBICORT [Suspect]
     Dosage: 160/4.5 TWO INHALATIONS
     Route: 055
  2. CORTANCYL [Suspect]
     Route: 048
  3. THEOSTAT [Suspect]
     Route: 048
  4. VENTOLIN [Suspect]
     Dosage: TWO INHALATIONS THREE TIMES A DAY
     Route: 055

REACTIONS (3)
  - CONFUSIONAL STATE [None]
  - LOGORRHOEA [None]
  - PSYCHOMOTOR HYPERACTIVITY [None]
